FAERS Safety Report 9133647 (Version 3)
Quarter: 2013Q2

REPORT INFORMATION
  Report Type: Spontaneous
  Country: JP (occurrence: JP)
  Receive Date: 20130125
  Receipt Date: 20130614
  Transmission Date: 20140414
  Serious: Yes (Hospitalization)
  Sender: FDA-Public Use
  Company Number: JP-B.I. PHARMACEUTICALS,INC./RIDGEFIELD-2013-BI-01699NB

PATIENT
  Age: 88 Year
  Sex: Male

DRUGS (7)
  1. TRAZENTA [Suspect]
     Indication: DIABETES MELLITUS
     Dosage: 5 MG
     Route: 048
     Dates: start: 20120106, end: 20130121
  2. RENIVACE [Suspect]
     Indication: HYPERTENSION
     Dosage: 5 MG
     Route: 065
     Dates: start: 20120413, end: 20130220
  3. DIART [Suspect]
     Indication: DIABETIC NEPHROPATHY
     Dosage: 60 MG
     Route: 065
     Dates: start: 20020610, end: 20130220
  4. LASIX [Suspect]
     Indication: RENAL FAILURE CHRONIC
     Dosage: 20 MG
     Route: 065
     Dates: start: 20121119, end: 20130220
  5. ZYLORIC [Concomitant]
     Indication: HYPERURICAEMIA
     Dosage: 100 MG
     Route: 065
     Dates: start: 20010703, end: 20130220
  6. ATELEC [Concomitant]
     Indication: HYPERTENSION
     Dosage: 5 MG
     Route: 065
     Dates: start: 20101030, end: 20130220
  7. GLIMICRON [Concomitant]
     Indication: DIABETES MELLITUS
     Dosage: 20 MG
     Route: 065
     Dates: end: 20120105

REACTIONS (4)
  - Renal failure acute [Not Recovered/Not Resolved]
  - Femur fracture [Not Recovered/Not Resolved]
  - Dehydration [Not Recovered/Not Resolved]
  - Fall [Not Recovered/Not Resolved]
